FAERS Safety Report 5017742-X (Version None)
Quarter: 2006Q2

REPORT INFORMATION
  Report Type: 
  Country: None (occurrence: None)
  Receive Date: 20060605
  Receipt Date: 20060425
  Transmission Date: 20061013
  Serious: Yes (Other)
  Sender: FDA-Public Use
  Company Number: PHBS2006ES06497

PATIENT
  Age: 74 Year
  Sex: Female

DRUGS (6)
  1. TRILEPTAL [Suspect]
     Indication: POLYNEUROPATHY
     Dosage: 300 MG QD
     Route: 048
     Dates: start: 20051206, end: 20051212
  2. PANTOPRAZOLE [Concomitant]
     Route: 065
  3. PREDNISONE [Concomitant]
     Route: 065
  4. BEMIPARINE [Concomitant]
     Route: 065
  5. SALBUTAMOL [Concomitant]
     Route: 065
  6. IPRATROPIUM BROMIDE [Concomitant]
     Route: 065

REACTIONS (6)
  - BLOOD PH DECREASED [None]
  - HYPERCAPNIA [None]
  - PCO2 INCREASED [None]
  - PO2 DECREASED [None]
  - RENAL FAILURE [None]
  - RESPIRATORY FAILURE [None]
